FAERS Safety Report 15223233 (Version 2)
Quarter: 2018Q4

REPORT INFORMATION
  Report Type: Spontaneous
  Country: ES (occurrence: ES)
  Receive Date: 20180731
  Receipt Date: 20181211
  Transmission Date: 20190204
  Serious: Yes (Death, Life-Threatening, Other)
  Sender: FDA-Public Use
  Company Number: ES-MYLANLABS-2018M1055728

PATIENT

DRUGS (4)
  1. TRETINOIN. [Suspect]
     Active Substance: TRETINOIN
     Indication: ACUTE PROMYELOCYTIC LEUKAEMIA
     Dosage: UNK
     Route: 065
  2. IDARUBICIN [Suspect]
     Active Substance: IDARUBICIN
     Indication: PRODUCT USED FOR UNKNOWN INDICATION
     Dosage: 5,7, 12 MG/M2, QD
     Route: 065
  3. MITOXANTRONE [Suspect]
     Active Substance: MITOXANTRONE HYDROCHLORIDE
     Indication: ACUTE PROMYELOCYTIC LEUKAEMIA
     Dosage: 10 MILLIGRAM/SQ. METER, QD
     Route: 065
  4. ATRA                               /00614702/ [Suspect]
     Active Substance: ATRACURIUM BESYLATE
     Indication: ACUTE PROMYELOCYTIC LEUKAEMIA
     Dosage: 45 MG/M2, QD
     Route: 065

REACTIONS (12)
  - Haemorrhage [Fatal]
  - Cardiogenic shock [Fatal]
  - Diarrhoea [Unknown]
  - Oral disorder [Unknown]
  - Neutropenia [Unknown]
  - Thrombosis [Fatal]
  - Neoplasm [Fatal]
  - Hepatotoxicity [Unknown]
  - Leukaemia recurrent [Unknown]
  - Differentiation syndrome [Fatal]
  - Thrombocytopenia [Unknown]
  - Infection [Fatal]
